FAERS Safety Report 4551391-2 (Version None)
Quarter: 2005Q1

REPORT INFORMATION
  Report Type: 
  Country: None (occurrence: None)
  Receive Date: 20050113
  Receipt Date: 20050106
  Transmission Date: 20050727
  Serious: Yes (Life-Threatening)
  Sender: FDA-Public Use
  Company Number: 200510213GDDC

PATIENT
  Age: 69 Year
  Sex: Female

DRUGS (13)
  1. FLUDEX [Suspect]
     Indication: DRUG USE FOR UNKNOWN INDICATION
     Route: 048
     Dates: start: 20030601, end: 20040101
  2. GENTAMICIN [Suspect]
     Indication: DRUG USE FOR UNKNOWN INDICATION
     Dosage: DOSE: UNK
     Route: 042
     Dates: start: 20031231, end: 20040101
  3. CLAMOXYL [Suspect]
     Indication: DRUG USE FOR UNKNOWN INDICATION
     Dosage: DOSE: UNK
     Route: 048
     Dates: start: 20031231, end: 20040101
  4. AMLOR [Suspect]
     Indication: DRUG USE FOR UNKNOWN INDICATION
     Dosage: DOSE: UNK
     Route: 048
     Dates: start: 20000101
  5. PERFALGAN [Suspect]
     Indication: DRUG USE FOR UNKNOWN INDICATION
     Dosage: DOSE: UNK
     Route: 042
     Dates: start: 20031231, end: 20040101
  6. ACETAMINOPHEN [Concomitant]
     Dates: start: 20031201
  7. FERVEX [Concomitant]
     Dates: start: 20031201
  8. OROPIVALONE [Concomitant]
     Dates: start: 20031216
  9. ADVIL [Concomitant]
     Dates: start: 20031216
  10. HEXAPNEUMINE SYRUP                 /01424801/ [Concomitant]
     Dates: start: 20031216
  11. RHINOFLUIMUCIL [Concomitant]
     Dates: start: 20031216
  12. DUPHALAC [Concomitant]
     Dates: start: 20031216
  13. SUDAFED 12 HOUR [Concomitant]
     Dates: start: 20031216

REACTIONS (8)
  - ALPHA 1 GLOBULIN INCREASED [None]
  - ANGIONEUROTIC OEDEMA [None]
  - C-REACTIVE PROTEIN INCREASED [None]
  - ENDOCARDITIS [None]
  - PROTEINURIA [None]
  - PURPURA [None]
  - RED BLOOD CELL SEDIMENTATION RATE INCREASED [None]
  - URINARY TRACT INFECTION [None]
